FAERS Safety Report 8400873-1 (Version None)
Quarter: 2012Q2

REPORT INFORMATION
  Report Type: 
  Country: None (occurrence: None)
  Receive Date: 20120601
  Receipt Date: 20090312
  Transmission Date: 20120825
  Serious: Yes (Other)
  Sender: FDA-Public Use
  Company Number: JP-BRISTOL-MYERS SQUIBB COMPANY-14559967

PATIENT
  Age: 77 Year
  Sex: Male

DRUGS (5)
  1. MAGMITT [Concomitant]
  2. ABILIFY [Suspect]
     Dosage: 18JAN08-24JAN08: 3MG 25JAN08-19FEB09: 6MG 20FEB09-10MAR09: 12MG
     Route: 048
     Dates: start: 20080118, end: 20090310
  3. BASEN [Concomitant]
  4. FLUNITRAZEPAM [Concomitant]
  5. SENNOSIDE A+B [Concomitant]

REACTIONS (3)
  - INFLUENZA [None]
  - PNEUMONIA [None]
  - DYSKINESIA [None]
